FAERS Safety Report 17611719 (Version 2)
Quarter: 2020Q2

REPORT INFORMATION
  Report Type: Report from Study
  Country: US (occurrence: US)
  Receive Date: 20200401
  Receipt Date: 20200616
  Transmission Date: 20200713
  Serious: No
  Sender: FDA-Public Use
  Company Number: NVSC2020US084979

PATIENT
  Age: 43 Year
  Sex: Female

DRUGS (1)
  1. GILENYA [Suspect]
     Active Substance: FINGOLIMOD HYDROCHLORIDE
     Indication: MULTIPLE SCLEROSIS
     Dosage: 0.5 MG, QD
     Route: 048

REACTIONS (6)
  - Coronavirus infection [Unknown]
  - Chills [Unknown]
  - Nasopharyngitis [Unknown]
  - Malaise [Unknown]
  - Ear pain [Unknown]
  - Influenza [Unknown]

NARRATIVE: CASE EVENT DATE: 202002
